FAERS Safety Report 6720562-9 (Version None)
Quarter: 2010Q2

REPORT INFORMATION
  Report Type: 
  Country: None (occurrence: None)
  Receive Date: 20100511
  Receipt Date: 20100511
  Transmission Date: 20101027
  Serious: No
  Sender: FDA-Public Use
  Company Number: None

PATIENT

DRUGS (1)
  1. PHENYLEPHRINE HCL [Suspect]
     Indication: SYMPATHOMIMETIC EFFECT
     Dates: start: 20100426, end: 20100428

REACTIONS (1)
  - PRODUCT MEASURED POTENCY ISSUE [None]
